FAERS Safety Report 6927736-2 (Version None)
Quarter: 2010Q3

REPORT INFORMATION
  Report Type: 
  Country: None (occurrence: None)
  Receive Date: 20100812
  Receipt Date: 20100809
  Transmission Date: 20110219
  Serious: Yes (Other)
  Sender: FDA-Public Use
  Company Number: A0874577A

PATIENT
  Age: 12 Year
  Sex: Male

DRUGS (1)
  1. SODIUM FLUORIDE + ISOPENTANE + SODIUM TRIPOLYPHOSPHATE (FORM NAFLUORID [Suspect]
     Indication: DENTAL CLEANING
     Dosage: DENTAL
     Route: 004

REACTIONS (2)
  - CHOKING [None]
  - SPEECH DISORDER [None]
